FAERS Safety Report 21627203 (Version 4)
Quarter: 2023Q1

REPORT INFORMATION
  Report Type: Report from Study
  Country: US (occurrence: US)
  Receive Date: 20221122
  Receipt Date: 20230117
  Transmission Date: 20230417
  Serious: Yes (Death, Hospitalization, Other)
  Sender: FDA-Public Use
  Company Number: US-TAKEDA-2022TUS086167

PATIENT
  Sex: Male
  Weight: 118 kg

DRUGS (2)
  1. MARIBAVIR [Suspect]
     Active Substance: MARIBAVIR
     Indication: Cytomegalovirus infection
     Dosage: 200 MILLIGRAM, BID
     Route: 048
     Dates: start: 20221113
  2. MARIBAVIR [Suspect]
     Active Substance: MARIBAVIR
     Dosage: 800 MILLIGRAM, BID
     Route: 065

REACTIONS (7)
  - Death [Fatal]
  - Aortic rupture [Unknown]
  - Incoherent [Unknown]
  - Gastrointestinal haemorrhage [Unknown]
  - Illness [Unknown]
  - Product use issue [Unknown]
  - Product availability issue [Unknown]
